FAERS Safety Report 20516546 (Version 3)
Quarter: 2022Q1

REPORT INFORMATION
  Report Type: Report from Study
  Country: US (occurrence: US)
  Receive Date: 20220225
  Receipt Date: 20220331
  Transmission Date: 20220424
  Serious: Yes (Other)
  Sender: FDA-Public Use
  Company Number: NVSC2022US043449

PATIENT
  Sex: Female

DRUGS (3)
  1. PIQRAY [Suspect]
     Active Substance: ALPELISIB
     Indication: Breast cancer metastatic
     Dosage: UNK
     Route: 065
  2. PIQRAY [Suspect]
     Active Substance: ALPELISIB
     Dosage: 300 MG
     Route: 065
  3. PIQRAY [Suspect]
     Active Substance: ALPELISIB
     Dosage: 150 MG
     Route: 065

REACTIONS (8)
  - Brain injury [Unknown]
  - Gait disturbance [Unknown]
  - Illness [Unknown]
  - Rhinorrhoea [Unknown]
  - Nausea [Unknown]
  - Vomiting [Unknown]
  - Hypertension [Unknown]
  - Adverse reaction [Unknown]
